FAERS Safety Report 10733484 (Version 5)
Quarter: 2019Q3

REPORT INFORMATION
  Report Type: Report from Study
  Country: US (occurrence: US)
  Receive Date: 20150123
  Receipt Date: 20190913
  Transmission Date: 20191004
  Serious: Yes (Death, Hospitalization, Other)
  Sender: FDA-Public Use
  Company Number: US-SA-2014SA176972

PATIENT
  Age: 62 Year
  Sex: Female

DRUGS (7)
  1. TERIFLUNOMIDE. [Suspect]
     Active Substance: TERIFLUNOMIDE
     Dosage: 14 MG,QD
     Route: 048
     Dates: start: 20141211
  2. GABAPENTIN. [Concomitant]
     Active Substance: GABAPENTIN
     Indication: SKIN BURNING SENSATION
     Dosage: 300 MG,TID
     Dates: start: 2002
  3. TERIFLUNOMIDE. [Suspect]
     Active Substance: TERIFLUNOMIDE
     Dosage: 14 MG,QD
     Route: 048
  4. FLUOXETINE [Concomitant]
     Active Substance: FLUOXETINE HYDROCHLORIDE
     Indication: ANTIDEPRESSANT THERAPY
     Dosage: 20 MG,QD
     Dates: start: 2002
  5. AMANTADINE. [Concomitant]
     Active Substance: AMANTADINE HYDROCHLORIDE
     Indication: MUSCLE TWITCHING
     Dosage: 100 MG,BID
     Dates: start: 2002
  6. BACLOFEN. [Concomitant]
     Active Substance: BACLOFEN
     Indication: MUSCLE SPASTICITY
     Dosage: PUMP IMPLANT- DOSAGE VARIES.
     Dates: start: 2002
  7. TERIFLUNOMIDE. [Suspect]
     Active Substance: TERIFLUNOMIDE
     Indication: MULTIPLE SCLEROSIS
     Dosage: 7 MG,QD
     Route: 048
     Dates: start: 20141113, end: 20141210

REACTIONS (9)
  - Headache [Unknown]
  - Diarrhoea [Recovered/Resolved]
  - Ulcer [Unknown]
  - Death [Fatal]
  - Colitis microscopic [Unknown]
  - Middle insomnia [Unknown]
  - Dehydration [Unknown]
  - Thrombosis [Unknown]
  - Alopecia [Recovered/Resolved]

NARRATIVE: CASE EVENT DATE: 201412
